FAERS Safety Report 9805589 (Version 1)
Quarter: 2014Q1

REPORT INFORMATION
  Report Type: Spontaneous
  Country: US (occurrence: None)
  Receive Date: 20140108
  Receipt Date: 20140108
  Transmission Date: 20141002
  Serious: Yes (Hospitalization)
  Sender: FDA-Public Use
  Company Number: None

PATIENT
  Age: 65 Year
  Sex: Male
  Weight: 112.9 kg

DRUGS (2)
  1. TEMOZOLOMIDE [Suspect]
     Dosage: DAILY X5 Q4WEEKS ORAL
     Route: 048
  2. 6-O-BENZYLGUANINE [Suspect]
     Dosage: DAILY X5 Q4WEEKS IV
     Route: 042

REACTIONS (8)
  - Asthenia [None]
  - Convulsion [None]
  - Asthenia [None]
  - Lethargy [None]
  - Immobile [None]
  - Decreased appetite [None]
  - Nausea [None]
  - Diarrhoea [None]
